FAERS Safety Report 6474808-5 (Version None)
Quarter: 2009Q4

REPORT INFORMATION
  Report Type: 
  Country: None (occurrence: None)
  Receive Date: 20091130
  Receipt Date: 20091119
  Transmission Date: 20100525
  Serious: Yes (Life-Threatening, Hospitalization)
  Sender: FDA-Public Use
  Company Number: DE-1171632

PATIENT
  Age: 70 Year
  Sex: Female

DRUGS (1)
  1. FLUORESCEIN SODIUM (FLUORESCEIN SODIUM) 10 % INJECTION LOT# 163047F SO [Suspect]
     Dosage: 2.5 ML (1 ML/SEC) INTRAVENOUS BOLUS
     Route: 040
     Dates: start: 20091001, end: 20091001

REACTIONS (5)
  - DRUG HYPERSENSITIVITY [None]
  - LOSS OF CONSCIOUSNESS [None]
  - NAUSEA [None]
  - RESTLESSNESS [None]
  - VOMITING [None]
